FAERS Safety Report 13523310 (Version 1)
Quarter: 2017Q2

REPORT INFORMATION
  Report Type: Spontaneous
  Country: US (occurrence: US)
  Receive Date: 20170508
  Receipt Date: 20170508
  Transmission Date: 20170830
  Serious: No
  Sender: FDA-Public Use
  Company Number: US-VIFOR (INTERNATIONAL) INC.-VIT-2017-02522

PATIENT
  Age: 72 Year
  Sex: Female

DRUGS (16)
  1. VELTASSA [Suspect]
     Active Substance: PATIROMER
     Indication: RENAL DISORDER
     Route: 048
     Dates: start: 20170306, end: 20170306
  2. TYLENOL [Concomitant]
     Active Substance: ACETAMINOPHEN
  3. ACETYLSALICYLIC ACID [Concomitant]
     Active Substance: ASPIRIN
  4. LINUM USITATISSIMUM SEED OIL [Concomitant]
  5. AMLODIPINE BESILATE [Concomitant]
     Active Substance: AMLODIPINE BESYLATE
  6. VELTASSA [Suspect]
     Active Substance: PATIROMER
     Indication: HYPERKALAEMIA
  7. AMIODARONE HYDROCHLORIDE. [Concomitant]
     Active Substance: AMIODARONE HYDROCHLORIDE
  8. BIOTIN [Concomitant]
     Active Substance: BIOTIN
  9. KRILL OIL OMEGA-3 [Concomitant]
  10. PROBIOTIC [Concomitant]
     Active Substance: PROBIOTICS NOS
  11. PRENATAL [Concomitant]
     Active Substance: VITAMINS
  12. AMIODARONE [Concomitant]
     Active Substance: AMIODARONE
  13. METOPROLOL TARTRATE. [Concomitant]
     Active Substance: METOPROLOL TARTRATE
  14. B-COMPLEX VITAMIN [Concomitant]
  15. PROBIOTIC [Concomitant]
     Active Substance: PROBIOTICS NOS
  16. NICOTINIC ACID [Concomitant]
     Active Substance: NIACIN

REACTIONS (16)
  - Toothache [Unknown]
  - Mental impairment [Not Recovered/Not Resolved]
  - Flushing [Unknown]
  - Chest pain [Unknown]
  - Malaise [Unknown]
  - Drug administration error [Unknown]
  - Feeling abnormal [Not Recovered/Not Resolved]
  - Diarrhoea [Unknown]
  - Off label use [Unknown]
  - Lymph node pain [Not Recovered/Not Resolved]
  - Swelling [Unknown]
  - Headache [Unknown]
  - Oral pain [Not Recovered/Not Resolved]
  - Insomnia [Unknown]
  - Visual impairment [Not Recovered/Not Resolved]
  - Hot flush [Unknown]

NARRATIVE: CASE EVENT DATE: 20160307
